FAERS Safety Report 10013579 (Version 1)
Quarter: 2014Q1

REPORT INFORMATION
  Report Type: Report from Study
  Country: FR (occurrence: FR)
  Receive Date: 20140315
  Receipt Date: 20140315
  Transmission Date: 20141002
  Serious: Yes (Hospitalization)
  Sender: FDA-Public Use
  Company Number: FR-ROCHE-1362747

PATIENT
  Sex: Female

DRUGS (10)
  1. RITUXIMAB [Suspect]
     Indication: RHEUMATOID ARTHRITIS
     Route: 065
     Dates: start: 20080404
  2. RITUXIMAB [Suspect]
     Route: 065
     Dates: start: 20080418
  3. RITUXIMAB [Suspect]
     Route: 065
     Dates: start: 20091105
  4. RITUXIMAB [Suspect]
     Route: 065
     Dates: start: 20091120
  5. RITUXIMAB [Suspect]
     Route: 065
     Dates: start: 20120209
  6. CORTANCYL [Concomitant]
     Route: 065
  7. CORTANCYL [Concomitant]
     Route: 065
  8. CORTANCYL [Concomitant]
     Route: 065
  9. METHOTREXATE [Concomitant]
     Route: 065
  10. METHOTREXATE [Concomitant]
     Route: 065

REACTIONS (4)
  - Tendon rupture [Recovered/Resolved]
  - Joint arthroplasty [Recovered/Resolved]
  - Trapezectomy [Recovered/Resolved]
  - Ligament operation [Recovered/Resolved]
